FAERS Safety Report 7065105-8 (Version None)
Quarter: 2010Q4

REPORT INFORMATION
  Report Type: 
  Country: None (occurrence: None)
  Receive Date: 20101027
  Receipt Date: 19920825
  Transmission Date: 20110411
  Serious: Yes (Death, Life-Threatening, Hospitalization)
  Sender: FDA-Public Use
  Company Number: DE-ROCHE-920318327001

PATIENT
  Sex: Female

DRUGS (30)
  1. VALIUM [Suspect]
     Indication: SEDATION
     Route: 042
     Dates: start: 19911021, end: 19911024
  2. PROSTIGMIN BROMIDE [Suspect]
     Route: 061
     Dates: start: 19911028, end: 19911028
  3. TRUXAL [Suspect]
     Indication: SEDATION
     Route: 042
     Dates: start: 19911019, end: 19911103
  4. BEPANTHEN [Suspect]
     Route: 042
     Dates: start: 19911027, end: 19911027
  5. FENTANYL CITRATE [Concomitant]
     Route: 042
     Dates: start: 19911018
  6. BREVIMYTAL NATRIUM [Concomitant]
     Route: 042
     Dates: start: 19911018
  7. BRONCHOPARAT [Concomitant]
     Route: 048
     Dates: start: 19911016, end: 19911031
  8. FLUIMUCIL [Concomitant]
     Route: 042
     Dates: start: 19911016, end: 19911103
  9. ANTITHROMBIN III [Concomitant]
     Route: 042
     Dates: start: 19911017, end: 19911020
  10. DIHYDROERGOTAMINE MESYLATE [Concomitant]
     Route: 048
     Dates: start: 19911017, end: 19911017
  11. ACETAMINOPHEN [Concomitant]
     Indication: SEPSIS
     Route: 054
     Dates: start: 19911102, end: 19911112
  12. CIPRO [Concomitant]
     Indication: SEPSIS
     Route: 042
     Dates: start: 19911028, end: 19911103
  13. ERYTHROMYCIN [Suspect]
     Indication: SEPSIS
     Route: 042
     Dates: start: 19911023
  14. ZIENAM [Suspect]
     Indication: SEPSIS
     Route: 042
     Dates: start: 19911016, end: 19911025
  15. DICODID [Suspect]
     Route: 030
     Dates: start: 19911024, end: 19911024
  16. CISAPRIDE [Suspect]
     Route: 048
     Dates: start: 19911025, end: 19911025
  17. CLOTRIMAZOLE [Concomitant]
     Indication: CANDIDIASIS
     Route: 067
     Dates: start: 19911106, end: 19911113
  18. MULTIBIONTA [Concomitant]
     Route: 042
  19. MINERAL TAB [Concomitant]
     Route: 042
     Dates: start: 19911019
  20. EUGALAN [Suspect]
     Route: 048
     Dates: start: 19911024, end: 19911027
  21. CLEMASTINE FUMARATE [Concomitant]
     Route: 042
     Dates: start: 19911026, end: 19911026
  22. LASIX [Suspect]
     Route: 048
     Dates: start: 19911019
  23. HYDROCORTISON [Concomitant]
     Route: 048
     Dates: end: 19911028
  24. VITAMINS [Concomitant]
     Route: 048
     Dates: start: 19911016, end: 19911101
  25. SUCRALFATE [Concomitant]
     Indication: PROPHYLAXIS
     Route: 048
     Dates: end: 19911026
  26. ZOVIRAX [Suspect]
     Route: 042
     Dates: start: 19911022, end: 19911107
  27. BETABION [Concomitant]
     Indication: ALCOHOLISM
     Route: 030
     Dates: end: 19911103
  28. HEXOBION [Concomitant]
     Indication: ALCOHOLISM
     Route: 042
     Dates: end: 19911103
  29. FOLSAN [Concomitant]
     Indication: ALCOHOLISM
     Route: 042
     Dates: end: 19911101
  30. OMEPRAZOLE [Suspect]
     Indication: PROPHYLAXIS
     Route: 048
     Dates: start: 19911028, end: 19911028

REACTIONS (2)
  - CEREBRAL HAEMORRHAGE [None]
  - TOXIC EPIDERMAL NECROLYSIS [None]
